FAERS Safety Report 8406119 (Version 2)
Quarter: 2014Q1

REPORT INFORMATION
  Report Type: Spontaneous
  Country: US (occurrence: US)
  Receive Date: 20120215
  Receipt Date: 20140313
  Transmission Date: 20141002
  Serious: No
  Sender: FDA-Public Use
  Company Number: US-PFIZER INC-2012037166

PATIENT
  Sex: Female

DRUGS (1)
  1. NITROSTAT [Suspect]
     Indication: ANGINA PECTORIS
     Dosage: UNK

REACTIONS (3)
  - Drug ineffective [Unknown]
  - Sensory disturbance [Unknown]
  - Headache [Unknown]
